FAERS Safety Report 19866261 (Version 3)
Quarter: 2021Q4

REPORT INFORMATION
  Report Type: Spontaneous
  Country: US (occurrence: US)
  Receive Date: 20210921
  Receipt Date: 20211123
  Transmission Date: 20220303
  Serious: Yes (Hospitalization)
  Sender: FDA-Public Use
  Company Number: US-HORIZON THERAPEUTICS-HZN-2021-006861

PATIENT

DRUGS (17)
  1. KRYSTEXXA [Suspect]
     Active Substance: PEGLOTICASE
     Indication: Gout
     Dosage: UNK
     Route: 042
     Dates: start: 202003
  2. KRYSTEXXA [Suspect]
     Active Substance: PEGLOTICASE
     Dosage: UNK
     Route: 042
     Dates: start: 202010
  3. KRYSTEXXA [Suspect]
     Active Substance: PEGLOTICASE
     Dosage: UNK
     Route: 042
     Dates: start: 20211022
  4. ASPIRIN [Concomitant]
     Active Substance: ASPIRIN
     Indication: Product used for unknown indication
     Dosage: 81 MG, QD
     Route: 048
     Dates: start: 20160728
  5. EPIPEN [Concomitant]
     Active Substance: EPINEPHRINE
     Indication: Anaphylactic reaction
     Dosage: 0.3 MG/0.3 ML INJECTION
     Route: 030
  6. ROMYCIN [ERYTHROMYCIN] [Concomitant]
     Indication: Product used for unknown indication
     Dosage: UNK
     Route: 047
     Dates: start: 20191228
  7. NORCO [Concomitant]
     Active Substance: ACETAMINOPHEN\HYDROCODONE BITARTRATE
     Indication: Pain
     Dosage: 5- 325 MG PER TABLET
     Route: 048
     Dates: start: 20210905, end: 20210913
  8. MOTRIN [Concomitant]
     Active Substance: IBUPROFEN
     Indication: Pain
     Dosage: 800 MG, TID
     Route: 048
     Dates: start: 20210905, end: 20210918
  9. LEVOTHYROXINE [Concomitant]
     Active Substance: LEVOTHYROXINE
     Indication: Product used for unknown indication
     Dosage: 25 UG
     Route: 048
  10. LISINOPRIL [Concomitant]
     Active Substance: LISINOPRIL
     Indication: Product used for unknown indication
     Dosage: 40 MG, QD
     Route: 048
     Dates: start: 20210711
  11. TOPROL XL [Concomitant]
     Active Substance: METOPROLOL SUCCINATE
     Indication: Product used for unknown indication
     Dosage: 25 MG, QD NIGHTLY
     Route: 048
     Dates: start: 20210905, end: 20210913
  12. THERAGRAN [ASCORBIC ACID;BIOTIN;CALCIUM PANTOTHENATE;CYANOCOBALAMIN;ER [Concomitant]
     Indication: Product used for unknown indication
     Dosage: UNK, QD
     Route: 048
  13. CRESTOR [Concomitant]
     Active Substance: ROSUVASTATIN CALCIUM
     Indication: Product used for unknown indication
     Dosage: 20 MG, QD
     Route: 048
  14. NITROSTAT [Concomitant]
     Active Substance: NITROGLYCERIN
     Indication: Chest pain
     Dosage: 0.4 MG EVERY FIVE MINUETS AS NEEDED
     Route: 060
     Dates: start: 20201009
  15. SENNA PLUS [Concomitant]
     Active Substance: DOCUSATE SODIUM\SENNOSIDES\SENNOSIDES A AND B
     Indication: Chest pain
     Dosage: 8.6 TO 50 MG, TWO TIMES A DAY
     Route: 048
     Dates: start: 20200905, end: 20200913
  16. BENADRYL ALLERGY [Concomitant]
     Active Substance: DIPHENHYDRAMINE HYDROCHLORIDE
     Indication: Prophylaxis
     Route: 065
  17. SOLU-MEDROL [Concomitant]
     Active Substance: METHYLPREDNISOLONE SODIUM SUCCINATE
     Indication: Prophylaxis
     Dosage: UNK
     Route: 042
     Dates: start: 20211022

REACTIONS (9)
  - Spinal fracture [Not Recovered/Not Resolved]
  - Dizziness [Recovered/Resolved]
  - Micturition urgency [Recovered/Resolved]
  - Fall [Recovered/Resolved]
  - Feeling abnormal [Recovered/Resolved]
  - Hyperhidrosis [Recovered/Resolved]
  - Dyspnoea [Recovered/Resolved]
  - Hypotension [Recovered/Resolved]
  - Slow response to stimuli [Recovered/Resolved]

NARRATIVE: CASE EVENT DATE: 20210903
